FAERS Safety Report 25340647 (Version 2)
Quarter: 2025Q2

REPORT INFORMATION
  Report Type: Spontaneous
  Country: FR (occurrence: FR)
  Receive Date: 20250521
  Receipt Date: 20250602
  Transmission Date: 20250716
  Serious: Yes (Other)
  Sender: NOVARTIS
  Company Number: FR-002147023-NVSC2025FR080539

PATIENT
  Age: 33 Year
  Sex: Female
  Weight: 70 kg

DRUGS (2)
  1. KESIMPTA [Suspect]
     Active Substance: OFATUMUMAB
     Indication: Relapsing-remitting multiple sclerosis
     Dosage: UNK UNK, QMO (20 MG 0.4 ML)
     Route: 058
     Dates: start: 202405, end: 202504
  2. VALACYCLOVIR HYDROCHLORIDE [Concomitant]
     Active Substance: VALACYCLOVIR HYDROCHLORIDE
     Indication: Genital herpes
     Dosage: 500 MG, BID (X 2DAILY)
     Route: 065

REACTIONS (10)
  - Hypogammaglobulinaemia [Unknown]
  - Limb reduction defect [Unknown]
  - Swelling [Unknown]
  - Herpes virus infection [Unknown]
  - Weight increased [Not Recovered/Not Resolved]
  - Balance disorder [Recovering/Resolving]
  - CD4/CD8 ratio decreased [Unknown]
  - General physical health deterioration [Unknown]
  - Fatigue [Unknown]
  - Vision blurred [Unknown]

NARRATIVE: CASE EVENT DATE: 20250215
